FAERS Safety Report 7667988-7 (Version None)
Quarter: 2011Q3

REPORT INFORMATION
  Report Type: 
  Country: None (occurrence: None)
  Receive Date: 20110808
  Receipt Date: 20110803
  Transmission Date: 20111222
  Serious: Yes (Life-Threatening, Hospitalization)
  Sender: FDA-Public Use
  Company Number: JP-BRISTOL-MYERS SQUIBB COMPANY-15599848

PATIENT
  Age: 73 Year
  Sex: Male
  Weight: 58 kg

DRUGS (2)
  1. ACTEMRA [Suspect]
     Route: 041
     Dates: start: 20110221
  2. ORENCIA [Suspect]
     Indication: RHEUMATOID ARTHRITIS
     Route: 041
     Dates: start: 20110124, end: 20110101

REACTIONS (1)
  - INTERSTITIAL LUNG DISEASE [None]
